FAERS Safety Report 8905338 (Version 1)
Quarter: 2012Q4

REPORT INFORMATION
  Report Type: Report from Study
  Country: SK (occurrence: SK)
  Receive Date: 20121113
  Receipt Date: 20121113
  Transmission Date: 20130627
  Serious: Yes (Death)
  Sender: FDA-Public Use
  Company Number: SK-EISAI INC-E2090-02401-SOL-SK

PATIENT

DRUGS (2)
  1. ZONISAMIDE [Suspect]
     Indication: DRUG EXPOSURE IN UTERO
     Dosage: 50 Milligram
     Route: 064
  2. VALPROIC ACID [Suspect]
     Indication: DRUG EXPOSURE IN UTERO
     Dosage: unknown
     Route: 064

REACTIONS (2)
  - Stillbirth [Fatal]
  - Exposure during pregnancy [Fatal]
